FAERS Safety Report 7361876-1 (Version None)
Quarter: 2011Q1

REPORT INFORMATION
  Report Type: 
  Country: None (occurrence: None)
  Receive Date: 20110315
  Receipt Date: 20110315
  Transmission Date: 20110831
  Serious: Yes (Life-Threatening, Hospitalization, Disabling)
  Sender: FDA-Public Use
  Company Number: None

PATIENT
  Age: 37 Year
  Sex: Female
  Weight: 47 kg

DRUGS (5)
  1. MERCAPTOPURINE [Concomitant]
  2. AMITRIPTYLINE [Concomitant]
  3. MIDRIN [Concomitant]
  4. REMICADE [Suspect]
     Indication: CROHN'S DISEASE
  5. PREDNISONE [Concomitant]

REACTIONS (5)
  - PHAEOCHROMOCYTOMA [None]
  - LYMPHOPROLIFERATIVE DISORDER [None]
  - POSTERIOR REVERSIBLE ENCEPHALOPATHY SYNDROME [None]
  - GRAND MAL CONVULSION [None]
  - CEREBRAL HAEMORRHAGE [None]
